FAERS Safety Report 4637846-0 (Version None)
Quarter: 2005Q2

REPORT INFORMATION
  Report Type: 
  Country: None (occurrence: None)
  Receive Date: 20050328
  Receipt Date: 20050202
  Transmission Date: 20051028
  Serious: No
  Sender: FDA-Public Use
  Company Number: USA050290083

PATIENT
  Age: 10 Year
  Sex: Male
  Weight: 29 kg

DRUGS (1)
  1. STRATTERA [Suspect]
     Dosage: 25 MG
     Dates: start: 20040219

REACTIONS (2)
  - DYSKINESIA [None]
  - PNEUMONIA [None]
